FAERS Safety Report 13530695 (Version 1)
Quarter: 2017Q2

REPORT INFORMATION
  Report Type: Spontaneous
  Country: US (occurrence: US)
  Receive Date: 20170509
  Receipt Date: 20170509
  Transmission Date: 20170830
  Serious: Yes (Hospitalization, Other)
  Sender: FDA-Public Use
  Company Number: None

PATIENT
  Age: 75 Year
  Sex: Male
  Weight: 69.5 kg

DRUGS (3)
  1. IPILIMUMAB [Suspect]
     Active Substance: IPILIMUMAB
     Dosage: 100MG TPHIV Q 6 WEEKS IV
     Route: 042
     Dates: start: 20170403
  2. RANOLAZINE. [Concomitant]
     Active Substance: RANOLAZINE
  3. NIVOLUMAB [Suspect]
     Active Substance: NIVOLUMAB
     Route: 042
     Dates: start: 20170403

REACTIONS (2)
  - Angina unstable [None]
  - Chest pain [None]

NARRATIVE: CASE EVENT DATE: 20170414
